FAERS Safety Report 12580765 (Version 2)
Quarter: 2016Q3

REPORT INFORMATION
  Report Type: Spontaneous
  Country: US (occurrence: US)
  Receive Date: 20160721
  Receipt Date: 20160829
  Transmission Date: 20161109
  Serious: No
  Sender: FDA-Public Use
  Company Number: US-PFIZER INC-2016316560

PATIENT
  Age: 48 Year
  Sex: Female

DRUGS (3)
  1. DYLOJECT [Suspect]
     Active Substance: DICLOFENAC SODIUM
     Indication: PROCEDURAL PAIN
     Dosage: 37.5 MG, EVERY 6 HOURS
     Route: 042
     Dates: start: 20160622, end: 20160623
  2. DYLOJECT [Suspect]
     Active Substance: DICLOFENAC SODIUM
     Indication: INFLAMMATION
     Dosage: 37.5 MG, EVERY 6 HOURS
     Route: 042
  3. DYLOJECT [Suspect]
     Active Substance: DICLOFENAC SODIUM
     Indication: ANALGESIC THERAPY

REACTIONS (5)
  - Feeling abnormal [Recovered/Resolved]
  - Injection site reaction [Recovered/Resolved]
  - Wrong technique in product usage process [Unknown]
  - Infusion site pain [Recovered/Resolved]
  - Administration site pain [Recovered/Resolved]

NARRATIVE: CASE EVENT DATE: 20160622
